FAERS Safety Report 20923654 (Version 2)
Quarter: 2022Q3

REPORT INFORMATION
  Report Type: Report from Study
  Country: CA (occurrence: CA)
  Receive Date: 20220607
  Receipt Date: 20220701
  Transmission Date: 20221027
  Serious: Yes (Hospitalization)
  Sender: FDA-Public Use
  Company Number: CA-NOVARTISPH-NVSC2022CA125669

PATIENT
  Age: 11 Month
  Sex: Male
  Weight: 13.6 kg

DRUGS (3)
  1. ALPELISIB [Suspect]
     Active Substance: ALPELISIB
     Indication: PIK3CA related overgrowth spectrum
     Dosage: 50 MG, QD
     Route: 048
     Dates: start: 20210827
  2. ALPELISIB [Suspect]
     Active Substance: ALPELISIB
     Dosage: UNK, BID (50 MG DAILY DOSE IN 2 DIVIDED DOSES)
     Route: 048
     Dates: start: 20220415
  3. ALPELISIB [Suspect]
     Active Substance: ALPELISIB
     Dosage: 50 MG, QD
     Route: 048
     Dates: start: 20220512

REACTIONS (2)
  - Headache [Recovered/Resolved]
  - Vomiting [Recovered/Resolved]

NARRATIVE: CASE EVENT DATE: 20220401
